FAERS Safety Report 16858526 (Version 2)
Quarter: 2019Q4

REPORT INFORMATION
  Report Type: Spontaneous
  Country: US (occurrence: US)
  Receive Date: 20190926
  Receipt Date: 20191009
  Transmission Date: 20200122
  Serious: Yes (Hospitalization)
  Sender: FDA-Public Use
  Company Number: US-TEVA-2019-US-1112310

PATIENT
  Age: 73 Year
  Sex: Male

DRUGS (9)
  1. CEFUROXIME. [Interacting]
     Active Substance: CEFUROXIME
     Indication: PHARYNGITIS STREPTOCOCCAL
     Route: 065
  2. SIMVASTATIN. [Concomitant]
     Active Substance: SIMVASTATIN
     Route: 065
  3. METFORMIN [Concomitant]
     Active Substance: METFORMIN HYDROCHLORIDE
     Route: 065
  4. PREDNISONE. [Concomitant]
     Active Substance: PREDNISONE
     Indication: RHEUMATOID ARTHRITIS
     Dosage: PREDNISONE TAPER
     Route: 065
  5. AMLODIPINE [Concomitant]
     Active Substance: AMLODIPINE BESYLATE
     Route: 065
  6. FUROSEMIDE. [Concomitant]
     Active Substance: FUROSEMIDE
     Route: 065
  7. WARFARIN [Suspect]
     Active Substance: WARFARIN
     Indication: DEEP VEIN THROMBOSIS
     Route: 065
  8. LOSARTAN. [Concomitant]
     Active Substance: LOSARTAN
     Route: 065
  9. HYDROXYCHLOROQUINE [Concomitant]
     Active Substance: HYDROXYCHLOROQUINE
     Route: 065

REACTIONS (9)
  - Renal tubular injury [Recovering/Resolving]
  - Anaemia [Recovered/Resolved]
  - Atheroembolism [Recovering/Resolving]
  - Drug interaction [Recovering/Resolving]
  - International normalised ratio increased [Recovered/Resolved]
  - Gastrointestinal haemorrhage [Unknown]
  - Renal embolism [Recovering/Resolving]
  - Intestinal ischaemia [Unknown]
  - Acute kidney injury [Recovering/Resolving]
